FAERS Safety Report 25564772 (Version 1)
Quarter: 2025Q3

REPORT INFORMATION
  Report Type: Spontaneous
  Country: NG (occurrence: NG)
  Receive Date: 20250716
  Receipt Date: 20250716
  Transmission Date: 20251021
  Serious: Yes (Life-Threatening, Hospitalization)
  Sender: GALPHARM INTERNATIONAL
  Company Number: NG-MLMSERVICE-20250704-PI566074-00030-1

PATIENT
  Age: 21 Year
  Sex: Male

DRUGS (5)
  1. IBUPROFEN [Suspect]
     Active Substance: IBUPROFEN
     Indication: Pain
     Route: 048
  2. DICLOFENAC SODIUM [Suspect]
     Active Substance: DICLOFENAC SODIUM
     Indication: Pain
     Route: 065
  3. PENTAZOCINE [Concomitant]
     Active Substance: PENTAZOCINE
     Indication: Pain
     Route: 065
  4. FOLIC ACID [Concomitant]
     Active Substance: FOLIC ACID
     Indication: Product used for unknown indication
     Route: 065
  5. ASTYMIN [AMINO ACIDS NOS] [Concomitant]
     Indication: Product used for unknown indication
     Route: 065

REACTIONS (4)
  - Gastric perforation [Recovered/Resolved]
  - Ileal perforation [Recovered/Resolved]
  - Ileus paralytic [Recovered/Resolved]
  - Peritonitis [Recovered/Resolved]
